FAERS Safety Report 11414025 (Version 1)
Quarter: 2015Q3

REPORT INFORMATION
  Report Type: Report from Study
  Country: US (occurrence: US)
  Receive Date: 20150824
  Receipt Date: 20150824
  Transmission Date: 20151125
  Serious: No
  Sender: FDA-Public Use
  Company Number: PHEH2015US014983

PATIENT
  Age: 19 Year
  Sex: Female

DRUGS (1)
  1. EXTAVIA [Suspect]
     Active Substance: INTERFERON BETA-1B
     Indication: MULTIPLE SCLEROSIS
     Dosage: 0.25 MG, (1 ML) (EVERY OTHER DAY)
     Route: 058

REACTIONS (11)
  - Fatigue [Unknown]
  - Irritability [Unknown]
  - Injection site mass [Unknown]
  - Injection site pain [Unknown]
  - Influenza [Unknown]
  - Pain [Unknown]
  - Apathy [Unknown]
  - Injection site pruritus [Unknown]
  - Anger [Unknown]
  - Depressed mood [Unknown]
  - Injection site erythema [Unknown]
